FAERS Safety Report 4622653-5 (Version None)
Quarter: 2005Q1

REPORT INFORMATION
  Report Type: 
  Country: None (occurrence: None)
  Receive Date: 20050328
  Receipt Date: 20050328
  Transmission Date: 20050727
  Serious: Yes (Death, Hospitalization)
  Sender: FDA-Public Use
  Company Number: None

PATIENT
  Sex: Male
  Weight: 59 kg

DRUGS (4)
  1. DOXIL [Suspect]
     Indication: GASTROOESOPHAGEAL CANCER
     Dosage: 69 MG IV EVERY 4 WKS
     Route: 042
     Dates: start: 20050207, end: 20050321
  2. TOPOTECAN [Suspect]
     Indication: GASTROOESOPHAGEAL CANCER
     Dosage: 3.5 MG IV WEEKLY X 3
     Route: 042
     Dates: start: 20050207, end: 20050321
  3. NEXIUM [Concomitant]
  4. MAGNESIUM [Concomitant]

REACTIONS (4)
  - DISEASE PROGRESSION [None]
  - GASTROINTESTINAL HAEMORRHAGE [None]
  - MELAENA [None]
  - VOMITING [None]
